FAERS Safety Report 17064950 (Version 1)
Quarter: 2019Q4

REPORT INFORMATION
  Report Type: Spontaneous
  Country: US (occurrence: US)
  Receive Date: 20191122
  Receipt Date: 20191122
  Transmission Date: 20200122
  Serious: No
  Sender: FDA-Public Use
  Company Number: US-IPSEN BIOPHARMACEUTICALS, INC.-2019-21749

PATIENT
  Age: 50 Year
  Sex: Female

DRUGS (5)
  1. TESTOSTERONE PELLETS [Concomitant]
     Active Substance: TESTOSTERONE
     Indication: MENOPAUSAL SYMPTOMS
     Route: 058
  2. ESTROGEN PELLETS [Concomitant]
     Indication: MENOPAUSAL SYMPTOMS
     Route: 058
  3. PROGESTERONE. [Concomitant]
     Active Substance: PROGESTERONE
     Indication: MENOPAUSAL SYMPTOMS
     Route: 048
  4. SPIRINOLACTONE [Concomitant]
     Active Substance: SPIRONOLACTONE
     Indication: MENOPAUSAL SYMPTOMS
     Route: 048
  5. DYSPORT [Suspect]
     Active Substance: ABOBOTULINUMTOXINA
     Indication: SKIN WRINKLING
     Dosage: NOT REPORTED
     Route: 065
     Dates: start: 201908, end: 201908

REACTIONS (2)
  - Drug ineffective [Unknown]
  - Skin swelling [Recovered/Resolved]

NARRATIVE: CASE EVENT DATE: 201908
